FAERS Safety Report 17515268 (Version 1)
Quarter: 2020Q1

REPORT INFORMATION
  Report Type: Report from Study
  Country: FR (occurrence: FR)
  Receive Date: 20200309
  Receipt Date: 20200309
  Transmission Date: 20200409
  Serious: Yes (Other)
  Sender: FDA-Public Use
  Company Number: FR-EMD SERONO-9149593

PATIENT
  Age: 12 Year
  Sex: Male
  Weight: 30 kg

DRUGS (2)
  1. SAIZEN [Suspect]
     Active Substance: SOMATROPIN
     Indication: PRODUCT USED FOR UNKNOWN INDICATION
  2. VENTOLINE                          /00139501/ [Concomitant]
     Active Substance: ALBUTEROL
     Indication: PRODUCT USED FOR UNKNOWN INDICATION

REACTIONS (10)
  - Irritability [Unknown]
  - Syncope [Unknown]
  - Fatigue [Unknown]
  - Malaise [Unknown]
  - Insomnia [Unknown]
  - Depressed level of consciousness [Unknown]
  - Abdominal pain upper [Unknown]
  - Product storage error [Unknown]
  - Vomiting [Unknown]
  - Pallor [Unknown]

NARRATIVE: CASE EVENT DATE: 202002
